FAERS Safety Report 5411375-9 (Version None)
Quarter: 2007Q3

REPORT INFORMATION
  Report Type: 
  Country: None (occurrence: None)
  Receive Date: 20070810
  Receipt Date: 20070807
  Transmission Date: 20080115
  Serious: Yes (Hospitalization)
  Sender: FDA-Public Use
  Company Number: US-BAXTER-2007BH006902

PATIENT
  Age: 67 Year
  Sex: Female

DRUGS (32)
  1. DEXAMETHASONE 0.5MG TAB [Suspect]
     Indication: PROPHYLAXIS OF NAUSEA AND VOMITING
     Route: 042
     Dates: start: 20060502, end: 20060503
  2. MELPHALAN [Suspect]
     Indication: CHEMOTHERAPY
     Dates: start: 20060502, end: 20060503
  3. MELPHALAN [Suspect]
     Indication: NAUSEA
     Dates: start: 20060502, end: 20060503
  4. MELPHALAN [Suspect]
     Indication: VOMITING
     Dates: start: 20060502, end: 20060503
  5. PLACEBO [Suspect]
     Indication: CHEMOTHERAPY
     Route: 042
     Dates: start: 20060502, end: 20060504
  6. PLACEBO [Suspect]
     Indication: NAUSEA
     Route: 042
     Dates: start: 20060502, end: 20060504
  7. PLACEBO [Suspect]
     Indication: VOMITING
     Route: 042
     Dates: start: 20060502, end: 20060504
  8. ALOXI [Suspect]
     Indication: CHEMOTHERAPY
     Route: 042
     Dates: start: 20060502, end: 20060504
  9. ALOXI [Suspect]
     Indication: NAUSEA
     Route: 042
     Dates: start: 20060502, end: 20060504
  10. ALOXI [Suspect]
     Indication: VOMITING
     Route: 042
     Dates: start: 20060502, end: 20060504
  11. AMLODIPINE [Concomitant]
     Indication: HYPERTENSION
     Route: 048
  12. QUINAPRIL HCL [Concomitant]
     Indication: HYPERTENSION
     Route: 048
  13. LEVOTHYROXINE SODIUM [Concomitant]
     Indication: HYPOTHYROIDISM
     Route: 048
  14. AMITRIPTYLINE HCL [Concomitant]
     Indication: NEUROPATHY PERIPHERAL
     Route: 048
  15. OXYCODONE HCL [Concomitant]
     Indication: BACK PAIN
     Route: 048
  16. ATORVASTATIN CALCIUM [Concomitant]
     Indication: HYPERCHOLESTEROLAEMIA
     Route: 048
  17. HYDROCHLOROTHIAZIDE [Concomitant]
     Indication: OEDEMA
     Route: 048
  18. LORATADINE [Concomitant]
     Indication: SINUSITIS
     Route: 048
  19. OMEPRAZOLE [Concomitant]
     Route: 048
  20. CHLORHEXIDINE GLUCONATE [Concomitant]
     Indication: MUCOSAL INFLAMMATION
  21. PREGABALIN [Concomitant]
     Indication: NEUROPATHY PERIPHERAL
     Route: 048
  22. LEVOFLOXACIN [Concomitant]
     Indication: PROPHYLAXIS
     Route: 048
  23. FLUCONAZOLE [Concomitant]
     Indication: PROPHYLAXIS
     Route: 048
  24. VALACYCLOVIR HCL [Concomitant]
     Indication: PROPHYLAXIS
     Route: 048
  25. METOPROLOL SUCCINATE [Concomitant]
     Indication: HYPERTENSION
     Route: 048
  26. PROPOXYPHENE HYDROCHLORIDE [Concomitant]
     Indication: BONE PAIN
     Route: 048
  27. LOPERAMIDE HCL [Concomitant]
     Indication: DIARRHOEA
     Route: 048
  28. FUROSEMIDE [Concomitant]
     Indication: OEDEMA
     Route: 048
  29. FILGRASTIM [Concomitant]
     Indication: ENGRAFTMENT SYNDROME
     Route: 048
  30. FOLIC ACID [Concomitant]
     Indication: DRUG USE FOR UNKNOWN INDICATION
     Route: 048
  31. MULTIVITAMIN [Concomitant]
     Indication: DRUG USE FOR UNKNOWN INDICATION
     Route: 048
  32. PSYLLIUM [Concomitant]
     Indication: DRUG USE FOR UNKNOWN INDICATION
     Route: 048

REACTIONS (1)
  - FEBRILE NEUTROPENIA [None]
